FAERS Safety Report 25935999 (Version 4)
Quarter: 2025Q4

REPORT INFORMATION
  Report Type: Spontaneous
  Country: US (occurrence: US)
  Receive Date: 20251017
  Receipt Date: 20251221
  Transmission Date: 20260119
  Serious: No
  Sender: UNITED THERAPEUTICS
  Company Number: US-UNITED THERAPEUTICS-UNT-2025-035160

PATIENT
  Sex: Female
  Weight: 60.771 kg

DRUGS (14)
  1. ORENITRAM [Suspect]
     Active Substance: TREPROSTINIL
     Indication: Pulmonary arterial hypertension
     Dosage: 1.5 MG, BID
     Dates: end: 2025
  2. ORENITRAM [Suspect]
     Active Substance: TREPROSTINIL
     Dosage: 1.25 MG, BID
     Dates: start: 2025, end: 2025
  3. ORENITRAM [Suspect]
     Active Substance: TREPROSTINIL
     Dosage: 1 MG, BID
     Dates: start: 2025, end: 2025
  4. ORENITRAM [Suspect]
     Active Substance: TREPROSTINIL
     Dosage: 1.25 MG, BID
     Dates: start: 2025
  5. ORENITRAM [Suspect]
     Active Substance: TREPROSTINIL
     Dosage: UNK
  6. ORENITRAM [Suspect]
     Active Substance: TREPROSTINIL
     Indication: Pulmonary arterial hypertension
     Dosage: UNK
  7. ORENITRAM [Suspect]
     Active Substance: TREPROSTINIL
     Indication: Pulmonary arterial hypertension
     Dosage: UNK
  8. AMLODIPINE BESYLATE [Concomitant]
     Active Substance: AMLODIPINE BESYLATE
     Indication: Product used for unknown indication
  9. LASIX [Concomitant]
     Active Substance: FUROSEMIDE
     Indication: Product used for unknown indication
  10. SILDENAFIL CITRATE [Concomitant]
     Active Substance: SILDENAFIL CITRATE
     Indication: Product used for unknown indication
  11. ALBUTEROL SULFATE [Concomitant]
     Active Substance: ALBUTEROL SULFATE
     Indication: Product used for unknown indication
  12. POTASSIUM CHLORIDE [Concomitant]
     Active Substance: POTASSIUM CHLORIDE
     Indication: Product used for unknown indication
  13. WINREVAIR [Concomitant]
     Active Substance: SOTATERCEPT-CSRK
     Indication: Product used for unknown indication
  14. DEPO-PROVERA [Concomitant]
     Active Substance: MEDROXYPROGESTERONE ACETATE
     Indication: Product used for unknown indication

REACTIONS (6)
  - Flushing [Unknown]
  - Headache [Unknown]
  - Nausea [Unknown]
  - Dyspnoea exertional [Unknown]
  - Overdose [Unknown]
  - Intentional dose omission [Unknown]
